FAERS Safety Report 8181350-2 (Version None)
Quarter: 2012Q1

REPORT INFORMATION
  Report Type: 
  Country: None (occurrence: None)
  Receive Date: 20120302
  Receipt Date: 20120229
  Transmission Date: 20120608
  Serious: Yes (Other)
  Sender: FDA-Public Use
  Company Number: US-PFIZER INC-2012054504

PATIENT
  Sex: Male
  Weight: 113 kg

DRUGS (6)
  1. LORCET-HD [Suspect]
     Indication: NECK PAIN
     Dosage: 7.5 MG, DAILY
     Dates: start: 20120201
  2. NEURONTIN [Suspect]
     Indication: FIBROMYALGIA
     Dosage: FIVE OR SIX CAPSULES OF 300 MG, DAILY
     Route: 048
     Dates: end: 20111201
  3. NEURONTIN [Suspect]
     Indication: PAIN
  4. LYRICA [Suspect]
     Indication: FIBROMYALGIA
     Dosage: 300 MG, DAILY
     Route: 048
  5. LYRICA [Suspect]
     Indication: PAIN
  6. LORCET-HD [Suspect]
     Indication: ARTHRALGIA

REACTIONS (3)
  - ARTHRALGIA [None]
  - DRUG INEFFECTIVE [None]
  - NECK PAIN [None]
